FAERS Safety Report 10269802 (Version 2)
Quarter: 2014Q3

REPORT INFORMATION
  Report Type: Spontaneous
  Country: ZA (occurrence: ZA)
  Receive Date: 20140701
  Receipt Date: 20140701
  Transmission Date: 20150326
  Serious: Yes (Hospitalization)
  Sender: FDA-Public Use
  Company Number: ZA-JNJFOC-20140603217

PATIENT
  Age: 63 Year
  Sex: Male

DRUGS (4)
  1. PREXUM PLUS [Concomitant]
     Active Substance: PERINDOPRIL ERBUMINE
     Route: 065
  2. XARELTO [Suspect]
     Active Substance: RIVAROXABAN
     Indication: EMBOLISM VENOUS
     Route: 048
     Dates: start: 201404, end: 201405
  3. LIPANTHYL [Concomitant]
     Active Substance: FENOFIBRATE
     Route: 065
  4. CRESTOR [Concomitant]
     Active Substance: ROSUVASTATIN CALCIUM
     Route: 065

REACTIONS (4)
  - Syncope [Unknown]
  - Haemorrhagic stroke [Unknown]
  - Aneurysm [Unknown]
  - Incorrect dose administered [Unknown]

NARRATIVE: CASE EVENT DATE: 20140523
